FAERS Safety Report 9748529 (Version 1)
Quarter: 2013Q4

REPORT INFORMATION
  Report Type: Spontaneous
  Country: US (occurrence: None)
  Receive Date: 20131211
  Receipt Date: 20131211
  Transmission Date: 20140711
  Serious: Yes (Death)
  Sender: FDA-Public Use
  Company Number: None

PATIENT
  Age: 67 Year
  Sex: Male
  Weight: 106.6 kg

DRUGS (1)
  1. ATORVASTATIN [Suspect]
     Indication: HYPERLIPIDAEMIA
     Dosage: MG, PO
     Route: 048
     Dates: start: 20130619, end: 20130716

REACTIONS (6)
  - Rhabdomyolysis [None]
  - Renal failure acute [None]
  - Myopathy [None]
  - Hepatic failure [None]
  - Muscular weakness [None]
  - Blood creatine phosphokinase increased [None]
